FAERS Safety Report 25034192 (Version 1)
Quarter: 2025Q1

REPORT INFORMATION
  Report Type: Spontaneous
  Country: SG (occurrence: SG)
  Receive Date: 20250304
  Receipt Date: 20250304
  Transmission Date: 20250409
  Serious: Yes (Other)
  Sender: KVK-TECH
  Company Number: SG-KVK-TECH, INC-20250200022

PATIENT

DRUGS (4)
  1. INDOMETHACIN [Suspect]
     Active Substance: INDOMETHACIN
     Indication: Patent ductus arteriosus
     Route: 065
  2. PENICILLIN [Concomitant]
     Active Substance: PENICILLIN
  3. GENTAMICIN [Concomitant]
     Active Substance: GENTAMICIN
  4. FLUCONAZOLE [Concomitant]
     Active Substance: FLUCONAZOLE

REACTIONS (4)
  - Necrotising colitis [Recovered/Resolved]
  - Intestinal perforation [Recovered/Resolved]
  - Pneumoperitoneum [Recovered/Resolved]
  - Intussusception [Recovered/Resolved]
